FAERS Safety Report 23547745 (Version 1)
Quarter: 2024Q1

REPORT INFORMATION
  Report Type: Spontaneous
  Country: GB (occurrence: GB)
  Receive Date: 20240221
  Receipt Date: 20240221
  Transmission Date: 20240409
  Serious: Yes (Other)
  Sender: FDA-Public Use
  Company Number: GB-RDY-LIT/GBR/24/0002661

PATIENT
  Sex: Male

DRUGS (3)
  1. IMATINIB [Suspect]
     Active Substance: IMATINIB
     Indication: Gastrointestinal stromal tumour
  2. SUNITINIB [Suspect]
     Active Substance: SUNITINIB
     Indication: Gastrointestinal stromal tumour
  3. REGORAFENIB [Concomitant]
     Active Substance: REGORAFENIB

REACTIONS (3)
  - Disease progression [Unknown]
  - Treatment failure [Unknown]
  - Cardiovascular disorder [Unknown]
